FAERS Safety Report 9153641 (Version 2)
Quarter: 2013Q1

REPORT INFORMATION
  Report Type: Spontaneous
  Country: DK (occurrence: None)
  Receive Date: 20130205
  Receipt Date: 20130227
  Transmission Date: 20140127
  Serious: Yes (Other)
  Sender: FDA-Public Use
  Company Number: 2013MA000852

PATIENT
  Age: 31 Year
  Sex: Male

DRUGS (6)
  1. LEVETIRACETAM ORAL SOLUTION, 100MG/ML (AMALLC) (LEVETIRACETAM) [Suspect]
     Indication: EPILEPSY
     Route: 048
     Dates: start: 2009
  2. VALPROIC ACID (VALPROIC ACID) [Suspect]
     Indication: AFFECTIVE DISORDER
     Route: 048
     Dates: start: 2009
  3. CLOZARIL (CLOZAPINE) [Suspect]
     Indication: SCHIZOPHRENIA
     Route: 048
     Dates: start: 20040428
  4. LANSOPRAZOLE [Concomitant]
  5. SIMVASTATIN [Concomitant]
  6. FYBOGEL [Concomitant]

REACTIONS (5)
  - Anaemia [None]
  - Pyrexia [None]
  - White blood cell count decreased [None]
  - Neutrophil count decreased [None]
  - Haemoglobin decreased [None]
